FAERS Safety Report 8092300-1 (Version None)
Quarter: 2012Q1

REPORT INFORMATION
  Report Type: 
  Country: None (occurrence: None)
  Receive Date: 20120129
  Receipt Date: 20111221
  Transmission Date: 20120608
  Serious: No
  Sender: FDA-Public Use
  Company Number: US-ABBOTT-11P-163-0877043-00

PATIENT
  Age: 47 Year
  Sex: Female

DRUGS (13)
  1. BYETTA [Concomitant]
     Indication: DIABETES MELLITUS
  2. VITAMIN D [Concomitant]
     Indication: VITAMIN SUPPLEMENTATION
     Dosage: DAILY
  3. PERCOCET [Concomitant]
     Indication: ULCER
  4. HUMIRA [Suspect]
     Indication: CROHN'S DISEASE
     Dates: start: 20111021
  5. AMARYL [Concomitant]
     Indication: DIABETES MELLITUS
     Dosage: DAILY
  6. LEVOXYL [Concomitant]
     Indication: HYPOTHYROIDISM
  7. FOLIC ACID [Concomitant]
     Indication: VITAMIN SUPPLEMENTATION
     Dosage: DAILY
  8. MULTI-VITAMINS [Concomitant]
     Indication: PRODUCT USED FOR UNKNOWN INDICATION
     Dosage: DAILY
  9. FLU INJECTION [Suspect]
     Indication: PRODUCT USED FOR UNKNOWN INDICATION
  10. SILVADENE [Concomitant]
     Indication: SKIN ULCER
  11. ZOLPIDEM [Concomitant]
     Indication: INSOMNIA
  12. ZOLPIDEM [Concomitant]
     Indication: MUSCULOSKELETAL PAIN
  13. REGLAN [Concomitant]
     Indication: ABDOMINAL PAIN UPPER
     Dosage: TWICE DAILY AS NEEDED

REACTIONS (12)
  - URTICARIA [None]
  - ARTHRALGIA [None]
  - GAIT DISTURBANCE [None]
  - INJECTION SITE PAIN [None]
  - SKIN ULCER [None]
  - INJECTION SITE WARMTH [None]
  - INJECTION SITE PRURITUS [None]
  - MUSCULOSKELETAL PAIN [None]
  - INJECTION SITE PAPULE [None]
  - INCORRECT DOSE ADMINISTERED [None]
  - JOINT SWELLING [None]
  - BLOOD GLUCOSE DECREASED [None]
